FAERS Safety Report 9879223 (Version 1)
Quarter: 2014Q1

REPORT INFORMATION
  Report Type: Report from Study
  Country: US (occurrence: US)
  Receive Date: 20140206
  Receipt Date: 20140206
  Transmission Date: 20141002
  Serious: Yes (Hospitalization)
  Sender: FDA-Public Use
  Company Number: PHHO2014US001694

PATIENT
  Age: 58 Year
  Sex: Female
  Weight: 98.3 kg

DRUGS (6)
  1. LEE011 [Suspect]
     Indication: BREAST CANCER METASTATIC
     Dosage: 300 MG, UNK
     Dates: start: 20140102, end: 20140123
  2. AFINITOR [Suspect]
     Indication: BREAST CANCER METASTATIC
     Dosage: 2.5 MG, UNK
     Dates: start: 20140102, end: 20140128
  3. EXEMESTANE [Suspect]
     Indication: BREAST CANCER METASTATIC
     Dosage: 25 MG, UNK
     Dates: start: 20140102, end: 20140128
  4. LEVOFLOXACIN [Concomitant]
     Indication: SINUSITIS
     Dosage: 580 MG, UNK
     Dates: start: 20140108, end: 20140115
  5. NAPROSYN [Concomitant]
     Indication: PAIN
     Dosage: 500 MG, UNK
     Dates: start: 20131220
  6. TYLENOL WITH CODEIN #3 [Concomitant]
     Indication: PAIN
     Dosage: 30 MG, UNK
     Dates: start: 20121129

REACTIONS (1)
  - Febrile neutropenia [Not Recovered/Not Resolved]
